FAERS Safety Report 12790313 (Version 1)
Quarter: 2016Q3

REPORT INFORMATION
  Report Type: Spontaneous
  Country: US (occurrence: US)
  Receive Date: 20160928
  Receipt Date: 20160928
  Transmission Date: 20161109
  Serious: Yes (Death)
  Sender: FDA-Public Use
  Company Number: US-RELYPSA-RLY2016002625

PATIENT
  Age: 75 Year
  Sex: Male

DRUGS (17)
  1. VELTASSA [Suspect]
     Active Substance: PATIROMER
     Indication: HYPERKALAEMIA
     Dosage: 8.4 G, QD
     Route: 048
  2. HYDRALAZINE HCL [Concomitant]
     Active Substance: HYDRALAZINE HYDROCHLORIDE
  3. GABAPENTIN. [Concomitant]
     Active Substance: GABAPENTIN
  4. HUMALOG MIX75/25 [Concomitant]
     Active Substance: INSULIN LISPRO
  5. LOVENOX [Concomitant]
     Active Substance: ENOXAPARIN SODIUM
  6. PROCRIT [Concomitant]
     Active Substance: ERYTHROPOIETIN
  7. L THYROXINE SERB [Concomitant]
  8. TRADJENTA [Concomitant]
     Active Substance: LINAGLIPTIN
  9. LUMIGAN [Concomitant]
     Active Substance: BIMATOPROST
  10. COLACE [Concomitant]
     Active Substance: DOCUSATE SODIUM
  11. HYDROCODONE BITARTRATE AND ACETAMINOPHEN [Concomitant]
     Active Substance: ACETAMINOPHEN\HYDROCODONE BITARTRATE
  12. SIMVASTATIN. [Concomitant]
     Active Substance: SIMVASTATIN
  13. REFRESH CELLUVISC [Concomitant]
     Active Substance: CARBOXYMETHYLCELLULOSE SODIUM
  14. TYLENOL [Concomitant]
     Active Substance: ACETAMINOPHEN
  15. ISOSORBIDE DINITRATE. [Concomitant]
     Active Substance: ISOSORBIDE DINITRATE
  16. KIONEX [Concomitant]
     Active Substance: SODIUM POLYSTYRENE SULFONATE
  17. OMEPRAZOLE. [Concomitant]
     Active Substance: OMEPRAZOLE

REACTIONS (1)
  - Death [Fatal]

NARRATIVE: CASE EVENT DATE: 20160916
